FAERS Safety Report 23298135 (Version 1)
Quarter: 2023Q4

REPORT INFORMATION
  Report Type: Spontaneous
  Country: US (occurrence: US)
  Receive Date: 20231214
  Receipt Date: 20231214
  Transmission Date: 20240109
  Serious: Yes (Life-Threatening, Hospitalization, Other)
  Sender: FDA-Public Use
  Company Number: US-FreseniusKabi-FK202320469

PATIENT
  Age: 40 Year
  Sex: Female

DRUGS (7)
  1. ARSENIC TRIOXIDE [Suspect]
     Active Substance: ARSENIC TRIOXIDE
     Indication: Acute promyelocytic leukaemia
  2. TRETINOIN [Suspect]
     Active Substance: TRETINOIN
     Indication: Acute promyelocytic leukaemia
  3. ANAKINRA [Concomitant]
     Active Substance: ANAKINRA
     Indication: Chest pain
  4. ASPIRIN [Concomitant]
     Active Substance: ASPIRIN
     Indication: Pericarditis
  5. COLCHICINE [Concomitant]
     Active Substance: COLCHICINE
     Indication: Pericarditis
  6. DEXAMETHASONE [Concomitant]
     Active Substance: DEXAMETHASONE
     Indication: Differentiation syndrome
  7. PREDNISONE [Concomitant]
     Active Substance: PREDNISONE
     Indication: Product used for unknown indication

REACTIONS (2)
  - Differentiation syndrome [Unknown]
  - Pericarditis [Unknown]
